FAERS Safety Report 6828755 (Version 4)
Quarter: 2014Q4

REPORT INFORMATION
  Report Type: Spontaneous
  Country: JP (occurrence: JP)
  Receive Date: 20081201
  Receipt Date: 20141020
  Transmission Date: 20150529
  Serious: Yes (Hospitalization, Other)
  Sender: FDA-Public Use
  Company Number: JP-PFIZER INC-2008100487

PATIENT
  Age: 29 Year
  Sex: Male
  Weight: 60 kg

DRUGS (5)
  1. MIYARISAN BM [Concomitant]
     Dates: start: 20080318, end: 20080410
  2. SALAZOPYRIN [Suspect]
     Active Substance: SULFASALAZINE
     Indication: COLITIS ULCERATIVE
     Dosage: 2 G, 3X/DAY
     Route: 048
     Dates: start: 20080410, end: 20080502
  3. MESALAZINE [Suspect]
     Active Substance: MESALAMINE
     Dosage: 1 G, 1X/DAY
     Route: 054
     Dates: start: 20080410, end: 20080506
  4. MESALAZINE [Suspect]
     Active Substance: MESALAMINE
     Dosage: 750 MG, 3X/DAY
     Route: 048
     Dates: start: 20080318, end: 20080506
  5. OTHER COLD COMBINATION PREPARATIONS [Concomitant]
     Active Substance: UNSPECIFIED INGREDIENT

REACTIONS (1)
  - Drug reaction with eosinophilia and systemic symptoms [Recovering/Resolving]

NARRATIVE: CASE EVENT DATE: 20080428
